FAERS Safety Report 23843094 (Version 1)
Quarter: 2024Q2

REPORT INFORMATION
  Report Type: Spontaneous
  Country: US (occurrence: US)
  Receive Date: 20240510
  Receipt Date: 20240510
  Transmission Date: 20240716
  Serious: No
  Sender: FDA-Public Use
  Company Number: US-HALEON-2174050

PATIENT
  Age: 16 Year
  Sex: Female

DRUGS (2)
  1. ACETAMINOPHEN [Suspect]
     Active Substance: ACETAMINOPHEN
     Indication: Vulvovaginal pain
     Dosage: EVERY 6 TO 8 HOURS FOR THE PAST 5 DAYS
  2. IBUPROFEN [Suspect]
     Active Substance: IBUPROFEN
     Indication: Vulvovaginal pain
     Dosage: EVERY 6 TO 8 HOURS FOR THE PAST 5 DAYS

REACTIONS (1)
  - Drug ineffective [Unknown]
